FAERS Safety Report 11842015 (Version 1)
Quarter: 2015Q4

REPORT INFORMATION
  Report Type: Spontaneous
  Country: US (occurrence: US)
  Receive Date: 20151216
  Receipt Date: 20151216
  Transmission Date: 20160305
  Serious: No
  Sender: FDA-Public Use
  Company Number: US-RB-072821-15

PATIENT
  Age: 3 Year
  Sex: Male

DRUGS (1)
  1. DELSYM [Suspect]
     Active Substance: DEXTROMETHORPHAN
     Indication: COUGH
     Dosage: . PATIENT WAS ADMINISTERED HALF TEASPOON OF THE PRODUCT; AMOUNT USED: ENTIRE BOTTLE.,FREQUENCY UNK
     Route: 065
     Dates: start: 20150102

REACTIONS (3)
  - Drug ineffective [Not Recovered/Not Resolved]
  - Accidental exposure to product by child [Recovered/Resolved]
  - Drug administered to patient of inappropriate age [None]
